FAERS Safety Report 18001549 (Version 4)
Quarter: 2021Q3

REPORT INFORMATION
  Report Type: Report from Study
  Country: US (occurrence: US)
  Receive Date: 20200709
  Receipt Date: 20210816
  Transmission Date: 20211014
  Serious: Yes (Hospitalization, Other)
  Sender: FDA-Public Use
  Company Number: NVSC2020US191600

PATIENT
  Sex: Male

DRUGS (1)
  1. TEGRETOL [Suspect]
     Active Substance: CARBAMAZEPINE
     Indication: PRODUCT USED FOR UNKNOWN INDICATION
     Dosage: UNK
     Route: 065

REACTIONS (9)
  - Paranoia [Unknown]
  - Upper limb fracture [Unknown]
  - Depression [Unknown]
  - Fall [Unknown]
  - Illness [Unknown]
  - Seizure [Unknown]
  - Suicidal ideation [Unknown]
  - Crying [Unknown]
  - Vomiting [Unknown]
